FAERS Safety Report 17941200 (Version 2)
Quarter: 2020Q2

REPORT INFORMATION
  Report Type: Spontaneous
  Country: US (occurrence: US)
  Receive Date: 20200624
  Receipt Date: 20200625
  Transmission Date: 20200714
  Serious: No
  Sender: FDA-Public Use
  Company Number: US-PFIZER INC-2020244839

PATIENT
  Age: 83 Year
  Sex: Female
  Weight: 64.41 kg

DRUGS (2)
  1. IBRANCE [Suspect]
     Active Substance: PALBOCICLIB
     Indication: NEOPLASM MALIGNANT
     Dosage: 125 MG, CYCLIC(EACH DAY FOR 21 DAYS AND 7 DAYS OFF)
     Route: 048
     Dates: start: 201906, end: 20200428
  2. ANASTROZOLE. [Concomitant]
     Active Substance: ANASTROZOLE
     Indication: AROMATASE INHIBITION THERAPY
     Dosage: 1 MG, DAILY
     Route: 048
     Dates: start: 201906, end: 20200428

REACTIONS (1)
  - Neoplasm progression [Unknown]
